FAERS Safety Report 9949249 (Version 3)
Quarter: 2014Q1

REPORT INFORMATION
  Report Type: Report from Study
  Country: JP (occurrence: JP)
  Receive Date: 20140304
  Receipt Date: 20140331
  Transmission Date: 20141002
  Serious: Yes (Death, Hospitalization)
  Sender: FDA-Public Use
  Company Number: JP-JNJFOC-20140301152

PATIENT
  Age: 93 Year
  Sex: Male
  Weight: 62 kg

DRUGS (13)
  1. XARELTO [Suspect]
     Indication: ATRIAL FIBRILLATION
     Route: 048
     Dates: start: 20130621, end: 20140212
  2. XARELTO [Suspect]
     Indication: CEREBROVASCULAR ACCIDENT PROPHYLAXIS
     Route: 048
     Dates: start: 20130621, end: 20140212
  3. XARELTO [Suspect]
     Indication: THROMBOSIS PROPHYLAXIS
     Route: 048
     Dates: start: 20130621, end: 20140212
  4. RABEPRAZOLE SODIUM [Concomitant]
     Route: 048
     Dates: end: 20140212
  5. MEPTIN [Concomitant]
     Route: 048
     Dates: end: 20140212
  6. MUCODYNE [Concomitant]
     Route: 048
     Dates: end: 20140212
  7. CEROCRAL [Concomitant]
     Route: 048
     Dates: start: 20140107, end: 20140212
  8. MUCOSOLVAN L [Concomitant]
     Route: 048
     Dates: end: 20140212
  9. DIOVAN [Concomitant]
     Route: 048
     Dates: end: 20140212
  10. CLARITH [Concomitant]
     Route: 048
     Dates: start: 20131025, end: 20140212
  11. TEGRETOL [Concomitant]
     Route: 048
     Dates: start: 20140107, end: 20140212
  12. ATELEC [Concomitant]
     Route: 048
     Dates: end: 20140212
  13. SERMION [Concomitant]
     Route: 048
     Dates: end: 20140212

REACTIONS (6)
  - Pneumonia [Fatal]
  - Inguinal hernia, obstructive [Not Recovered/Not Resolved]
  - Haemoptysis [Recovered/Resolved]
  - Pneumonia [Recovered/Resolved]
  - Dyspnoea [Recovered/Resolved]
  - Bronchial haemorrhage [Recovered/Resolved]
